FAERS Safety Report 5945334-4 (Version None)
Quarter: 2008Q4

REPORT INFORMATION
  Report Type: 
  Country: None (occurrence: None)
  Receive Date: 20081107
  Receipt Date: 20081028
  Transmission Date: 20090506
  Serious: Yes (Hospitalization, Other)
  Sender: FDA-Public Use
  Company Number: US-PFIZER INC-2004110289

PATIENT
  Sex: Female
  Weight: 85.7 kg

DRUGS (2)
  1. BEXTRA [Suspect]
     Indication: OSTEOARTHRITIS
     Route: 048
     Dates: start: 20030201, end: 20040813
  2. ZIAC [Concomitant]
     Route: 048

REACTIONS (8)
  - BLOOD GLUCOSE INCREASED [None]
  - CHONDROPATHY [None]
  - DIZZINESS [None]
  - HEADACHE [None]
  - HYPERTENSION [None]
  - HYPOTHERMIA [None]
  - KNEE OPERATION [None]
  - RENAL IMPAIRMENT [None]
